FAERS Safety Report 17276586 (Version 2)
Quarter: 2020Q1

REPORT INFORMATION
  Report Type: Report from Study
  Country: US (occurrence: US)
  Receive Date: 20200116
  Receipt Date: 20200214
  Transmission Date: 20200409
  Serious: Yes (Death)
  Sender: FDA-Public Use
  Company Number: NVSC2020US007519

PATIENT
  Sex: Female
  Weight: 146.4 kg

DRUGS (4)
  1. COSENTYX [Suspect]
     Active Substance: SECUKINUMAB
     Indication: PSORIATIC ARTHROPATHY
     Dosage: UNK
     Route: 065
     Dates: start: 201907
  2. ASPIRIN. [Concomitant]
     Active Substance: ASPIRIN
     Indication: PRODUCT USED FOR UNKNOWN INDICATION
     Route: 065
  3. MTX [Concomitant]
     Active Substance: METHOTREXATE SODIUM
     Indication: PRODUCT USED FOR UNKNOWN INDICATION
     Route: 065
  4. FOLIC ACID. [Concomitant]
     Active Substance: FOLIC ACID
     Indication: PRODUCT USED FOR UNKNOWN INDICATION
     Dosage: 1 DF
     Route: 065

REACTIONS (23)
  - Rash [Unknown]
  - Skin warm [Unknown]
  - Diarrhoea [Unknown]
  - Arthralgia [Unknown]
  - Paraesthesia [Unknown]
  - Death [Fatal]
  - Peripheral swelling [Unknown]
  - Balance disorder [Unknown]
  - Dizziness [Unknown]
  - Nasal congestion [Unknown]
  - Malaise [Unknown]
  - Rhinorrhoea [Unknown]
  - Psoriasis [Unknown]
  - Discomfort [Unknown]
  - Musculoskeletal pain [Unknown]
  - Fatigue [Unknown]
  - Dry skin [Unknown]
  - Pain [Unknown]
  - Asthenia [Unknown]
  - Cough [Unknown]
  - Back pain [Unknown]
  - Dyspepsia [Unknown]
  - Tenderness [Unknown]
